FAERS Safety Report 16955990 (Version 1)
Quarter: 2019Q4

REPORT INFORMATION
  Report Type: Spontaneous
  Country: US (occurrence: US)
  Receive Date: 20191024
  Receipt Date: 20191024
  Transmission Date: 20200122
  Serious: No
  Sender: FDA-Public Use
  Company Number: US-MYLANLABS-2019M1096397

PATIENT
  Sex: Male
  Weight: 109 kg

DRUGS (1)
  1. MUSE [Suspect]
     Active Substance: ALPROSTADIL
     Indication: PROSTATE CANCER
     Dosage: UNK
     Route: 066

REACTIONS (1)
  - Expired product administered [Not Recovered/Not Resolved]
